FAERS Safety Report 16655947 (Version 1)
Quarter: 2019Q3

REPORT INFORMATION
  Report Type: Spontaneous
  Country: US (occurrence: US)
  Receive Date: 20190731
  Receipt Date: 20190731
  Transmission Date: 20191004
  Serious: No
  Sender: FDA-Public Use
  Company Number: None

PATIENT
  Age: 32 Year
  Sex: Female
  Weight: 49.5 kg

DRUGS (1)
  1. METHYLPHENIDATE HCL ER [Suspect]
     Active Substance: METHYLPHENIDATE HYDROCHLORIDE
     Indication: ATTENTION DEFICIT/HYPERACTIVITY DISORDER
     Dosage: ?          QUANTITY:30 TABLET(S);?
     Route: 048
     Dates: start: 20190725

REACTIONS (4)
  - Heart rate increased [None]
  - Product substitution issue [None]
  - Drug ineffective [None]
  - Product formulation issue [None]

NARRATIVE: CASE EVENT DATE: 20190725
